FAERS Safety Report 13514371 (Version 1)
Quarter: 2017Q2

REPORT INFORMATION
  Report Type: Spontaneous
  Country: US (occurrence: US)
  Receive Date: 20170504
  Receipt Date: 20170504
  Transmission Date: 20170830
  Serious: No
  Sender: FDA-Public Use
  Company Number: US-ABBVIE-16P-163-1691090-00

PATIENT
  Age: 10 Week
  Sex: Female
  Weight: 4.99 kg

DRUGS (1)
  1. CREON [Suspect]
     Active Substance: PANCRELIPASE AMYLASE\PANCRELIPASE LIPASE\PANCRELIPASE PROTEASE
     Indication: PRODUCT USED FOR UNKNOWN INDICATION
     Dosage: 3 CAPSULES WITH EACH FEEDING, ABOUT 6-8 TIMES PER DAY
     Route: 048

REACTIONS (3)
  - Irritability [Unknown]
  - Vomiting [Unknown]
  - Malabsorption [Unknown]
